FAERS Safety Report 18873917 (Version 1)
Quarter: 2021Q1

REPORT INFORMATION
  Report Type: Spontaneous
  Country: US (occurrence: US)
  Receive Date: 20210210
  Receipt Date: 20210210
  Transmission Date: 20210420
  Serious: No
  Sender: FDA-Public Use
  Company Number: US-ASTRAZENECA-2021A035303

PATIENT
  Sex: Male
  Weight: 83.9 kg

DRUGS (2)
  1. BUDESONIDE AND FORMOTEROL AEROSOL INHALER [Suspect]
     Active Substance: BUDESONIDE\FORMOTEROL FUMARATE DIHYDRATE
     Indication: ASTHMA
     Dosage: 160/4.5MCG, TWO PUFFS IN THE MORNING AND TWO PUFFS AT NIGHT
     Route: 055
  2. BUDESONIDE AND FORMOTEROL AEROSOL INHALER [Suspect]
     Active Substance: BUDESONIDE\FORMOTEROL FUMARATE DIHYDRATE
     Indication: CHRONIC OBSTRUCTIVE PULMONARY DISEASE
     Dosage: 160/4.5MCG, TWO PUFFS IN THE MORNING AND TWO PUFFS AT NIGHT
     Route: 055

REACTIONS (2)
  - Device delivery system issue [Unknown]
  - Cough [Unknown]
